FAERS Safety Report 19421653 (Version 1)
Quarter: 2021Q2

REPORT INFORMATION
  Report Type: Spontaneous
  Country: US (occurrence: US)
  Receive Date: 20210615
  Receipt Date: 20210615
  Transmission Date: 20210717
  Serious: Yes (Disabling)
  Sender: FDA-Public Use
  Company Number: None

PATIENT
  Age: 55 Year
  Sex: Male
  Weight: 90 kg

DRUGS (8)
  1. SYNTHROID [Concomitant]
     Active Substance: LEVOTHYROXINE SODIUM
  2. CARBIDOPA AND LEVODOPA [Suspect]
     Active Substance: CARBIDOPA\LEVODOPA
     Indication: PARKINSON^S DISEASE
     Dosage: ?          QUANTITY:240 TABLET(S);?
     Route: 048
     Dates: start: 20141201, end: 20210601
  3. KIRKLAND VITAMIN E [Concomitant]
  4. SINEMET [Concomitant]
     Active Substance: CARBIDOPA\LEVODOPA
  5. ONGENTYS [Concomitant]
     Active Substance: OPICAPONE
  6. KIRKLAND CALCIUM CITRATE MAGNESIUM [Concomitant]
  7. ZINC MOVE FREE ULTRA [Concomitant]
  8. ROPINIROL [Concomitant]
     Active Substance: ROPINIROLE

REACTIONS (1)
  - Tremor [None]

NARRATIVE: CASE EVENT DATE: 20210601
